FAERS Safety Report 21753560 (Version 3)
Quarter: 2023Q4

REPORT INFORMATION
  Report Type: Report from Study
  Country: US (occurrence: US)
  Receive Date: 20221220
  Receipt Date: 20231003
  Transmission Date: 20240109
  Serious: Yes (Other)
  Sender: FDA-Public Use
  Company Number: US-002147023-NVSC2022US292846

PATIENT
  Sex: Female
  Weight: 11.338 kg

DRUGS (1)
  1. AFINITOR [Suspect]
     Active Substance: EVEROLIMUS
     Indication: Product used for unknown indication
     Dosage: UNK
     Route: 065

REACTIONS (4)
  - Neoplasm malignant [Unknown]
  - Illness [Unknown]
  - Adverse drug reaction [Unknown]
  - Product dose omission issue [Unknown]
